FAERS Safety Report 16089732 (Version 2)
Quarter: 2019Q1

REPORT INFORMATION
  Report Type: Spontaneous
  Country: US (occurrence: US)
  Receive Date: 20190319
  Receipt Date: 20190322
  Transmission Date: 20190418
  Serious: Yes (Death, Other)
  Sender: FDA-Public Use
  Company Number: US-PFIZER INC-2019115842

PATIENT
  Age: 28 Year
  Sex: Female

DRUGS (4)
  1. DOXORUBICIN HCL [Suspect]
     Active Substance: DOXORUBICIN HYDROCHLORIDE
     Indication: OSTEOSARCOMA
     Dosage: 60 MG/M2, CYCLIC (INFUSION)
     Route: 013
  2. METHOTREXATE SODIUM. [Suspect]
     Active Substance: METHOTREXATE SODIUM
     Indication: OSTEOSARCOMA
     Dosage: UNK UNK, CYCLIC (TOTAL DRUG DOSE 66 G/M^2)
  3. VINCRISTINE SULFATE. [Suspect]
     Active Substance: VINCRISTINE SULFATE
     Indication: OSTEOSARCOMA
     Dosage: 1 MG/M2, MONTHLY (3 DOSES AT MONTHLY INTERVALS)
  4. DOXORUBICIN HCL [Suspect]
     Active Substance: DOXORUBICIN HYDROCHLORIDE
     Dosage: 70 MG/M2, CYCLIC (INFUSION, 5 COURSES OVER 2 DAYS AT MONTHLY INTERVALS)
     Route: 013

REACTIONS (2)
  - Acute myeloid leukaemia [Fatal]
  - Second primary malignancy [Fatal]
